FAERS Safety Report 5762989-8 (Version None)
Quarter: 2008Q2

REPORT INFORMATION
  Report Type: 
  Country: None (occurrence: None)
  Receive Date: 20080602
  Receipt Date: 20080311
  Transmission Date: 20081010
  Serious: No
  Sender: FDA-Public Use
  Company Number: PHEH2008US02716

PATIENT
  Sex: Male

DRUGS (2)
  1. TEKTURNA [Suspect]
     Dosage: 300 MG
     Dates: start: 20071001
  2. HYDROCHLOROTHIAZIDE [Suspect]
     Dosage: 25 MG

REACTIONS (1)
  - DIZZINESS [None]
